FAERS Safety Report 4884622-X (Version None)
Quarter: 2006Q1

REPORT INFORMATION
  Report Type: 
  Country: None (occurrence: None)
  Receive Date: 20060117
  Receipt Date: 20060105
  Transmission Date: 20060701
  Serious: Yes (Death, Hospitalization)
  Sender: FDA-Public Use
  Company Number: 163-20785-05120127

PATIENT
  Age: 73 Year
  Sex: Male

DRUGS (5)
  1. THALOMID [Suspect]
     Indication: MULTIPLE MYELOMA
     Dosage: 400 MG, QHS, ORAL
     Route: 048
     Dates: end: 20050101
  2. THALOMID [Suspect]
     Indication: MULTIPLE MYELOMA
     Dosage: 400 MG, QHS, ORAL
     Route: 048
     Dates: start: 20050601, end: 20051021
  3. PREDNISONE [Concomitant]
  4. PROTONIX [Concomitant]
  5. CORDARONE [Concomitant]

REACTIONS (2)
  - PNEUMONIA [None]
  - RENAL FAILURE CHRONIC [None]
